FAERS Safety Report 12712108 (Version 1)
Quarter: 2016Q3

REPORT INFORMATION
  Report Type: Spontaneous
  Country: US (occurrence: US)
  Receive Date: 20160902
  Receipt Date: 20160902
  Transmission Date: 20161109
  Serious: Yes (Hospitalization)
  Sender: FDA-Public Use
  Company Number: US-AUROBINDO-AUR-APL-2016-11032

PATIENT
  Age: 17 Year
  Sex: Male

DRUGS (1)
  1. TRIMETHOPRIM+SULFAMETHOXAZOLE [Suspect]
     Active Substance: SULFAMETHOXAZOLE\TRIMETHOPRIM
     Indication: ACNE
     Route: 065

REACTIONS (31)
  - Leukocytosis [Recovered/Resolved]
  - Lymphocytosis [Recovered/Resolved]
  - Eosinophilia [Recovered/Resolved]
  - Skin swelling [Recovered/Resolved]
  - Myalgia [Recovered/Resolved]
  - Blood bilirubin increased [Recovered/Resolved]
  - Rash macular [Recovered/Resolved]
  - Hepatosplenomegaly [Recovered/Resolved]
  - Diarrhoea [Recovered/Resolved]
  - Papule [Recovered/Resolved]
  - Face oedema [Recovered/Resolved]
  - Antineutrophil cytoplasmic antibody increased [Recovered/Resolved]
  - Pyrexia [Recovered/Resolved]
  - Lymphadenopathy [Recovered/Resolved]
  - Pain [Recovered/Resolved]
  - C-reactive protein increased [Recovered/Resolved]
  - Red blood cell sedimentation rate increased [Recovered/Resolved]
  - Nausea [Recovered/Resolved]
  - Abdominal tenderness [Recovered/Resolved]
  - Arthralgia [Recovered/Resolved]
  - Oropharyngeal pain [Recovered/Resolved]
  - Blood creatinine increased [Recovered/Resolved]
  - Vomiting [Recovered/Resolved]
  - Drug reaction with eosinophilia and systemic symptoms [Recovered/Resolved]
  - Abdominal pain [Recovered/Resolved]
  - Rash [Recovered/Resolved]
  - Cough [Recovered/Resolved]
  - Skin discolouration [Recovered/Resolved]
  - Liver function test increased [Recovered/Resolved]
  - Skin exfoliation [Recovered/Resolved]
  - Generalised oedema [Recovered/Resolved]
